FAERS Safety Report 18589794 (Version 2)
Quarter: 2021Q1

REPORT INFORMATION
  Report Type: Report from Study
  Country: BR (occurrence: BR)
  Receive Date: 20201208
  Receipt Date: 20210203
  Transmission Date: 20210419
  Serious: Yes (Other)
  Sender: FDA-Public Use
  Company Number: PHHY2018BR161860

PATIENT
  Age: 39 Year
  Sex: Female
  Weight: 80 kg

DRUGS (4)
  1. LEVOID [Concomitant]
     Active Substance: LEVOTHYROXINE
     Indication: HYPOTHYROIDISM
     Dosage: 11 MG, QD
     Route: 048
     Dates: start: 201701
  2. COSENTYX [Suspect]
     Active Substance: SECUKINUMAB
     Indication: PSORIATIC ARTHROPATHY
     Dosage: 300 MG (2X150 MG), QMO (EVERY 28 DAYS)
     Route: 058
     Dates: start: 201901
  3. COSENTYX [Suspect]
     Active Substance: SECUKINUMAB
     Indication: PSORIASIS
     Dosage: 300 MG (2X150 MG), QMO (EVERY 28 DAYS)
     Route: 058
     Dates: start: 20191230, end: 20201118
  4. METHOTREXATE. [Concomitant]
     Active Substance: METHOTREXATE
     Indication: PSORIATIC ARTHROPATHY
     Dosage: 10 MG, BIW
     Route: 048

REACTIONS (15)
  - Pyrexia [Recovered/Resolved]
  - Thyroid cancer [Unknown]
  - Nasopharyngitis [Recovering/Resolving]
  - Headache [Recovered/Resolved]
  - Benign breast neoplasm [Unknown]
  - Rhinitis [Recovering/Resolving]
  - Thyroid mass [Unknown]
  - Depression [Recovering/Resolving]
  - Nasal congestion [Recovered/Resolved]
  - Secretion discharge [Recovering/Resolving]
  - Breast mass [Unknown]
  - Leiomyoma [Unknown]
  - Asthma [Recovered/Resolved]
  - Pain [Recovered/Resolved]
  - Anxiety [Recovering/Resolving]

NARRATIVE: CASE EVENT DATE: 201903
